FAERS Safety Report 6926991-2 (Version None)
Quarter: 2010Q3

REPORT INFORMATION
  Report Type: 
  Country: None (occurrence: None)
  Receive Date: 20100816
  Receipt Date: 20100721
  Transmission Date: 20110219
  Serious: No
  Sender: FDA-Public Use
  Company Number: US-ABBOTT-10P-163-0658681-00

PATIENT
  Sex: Male
  Weight: 86.26 kg

DRUGS (8)
  1. SIMCOR [Suspect]
     Indication: LOW DENSITY LIPOPROTEIN INCREASED
     Dosage: 500/20MG EVERY MORNING
     Dates: start: 20100101
  2. SIMCOR [Suspect]
     Indication: BLOOD TRIGLYCERIDES
  3. SIMCOR [Suspect]
     Indication: HIGH DENSITY LIPOPROTEIN DECREASED
  4. ASPIRIN [Concomitant]
     Indication: PRODUCT USED FOR UNKNOWN INDICATION
     Dosage: EVERY MORNING
  5. UNKNOWN GENERIC MEDICATION [Concomitant]
     Indication: DRUG THERAPY
  6. UNKNOWN GENERIC MEDICATION [Concomitant]
  7. UNKNOWN GENERIC MEDICATION [Concomitant]
     Indication: PROSTATOMEGALY
  8. UNKNOWN GENERIC MEDICATION [Concomitant]

REACTIONS (2)
  - FLUSHING [None]
  - RASH [None]
